FAERS Safety Report 4862925-2 (Version None)
Quarter: 2005Q4

REPORT INFORMATION
  Report Type: 
  Country: None (occurrence: None)
  Receive Date: 20051221
  Receipt Date: 20041216
  Transmission Date: 20060501
  Serious: Yes (Life-Threatening, Hospitalization, Other)
  Sender: FDA-Public Use
  Company Number: JP-ABBOTT-04P-087-0284658-00

PATIENT
  Sex: Male

DRUGS (21)
  1. KALETRA [Suspect]
     Indication: HIV INFECTION
     Route: 048
     Dates: start: 20040210, end: 20040227
  2. NORVIR [Suspect]
     Indication: HIV INFECTION
     Route: 048
     Dates: start: 20040706, end: 20040722
  3. TACROLIMUS [Interacting]
     Indication: LIVER TRANSPLANT
     Route: 042
     Dates: start: 20040203, end: 20040211
  4. LAMIVUDINE [Suspect]
     Indication: HIV INFECTION
     Route: 048
     Dates: start: 20040210, end: 20040227
  5. ABACAVIR [Suspect]
     Indication: HIV INFECTION
     Dates: start: 20040210, end: 20040227
  6. ATAZANAVIR [Suspect]
     Indication: HIV INFECTION
     Route: 048
     Dates: start: 20040706, end: 20040722
  7. TENOFOVIR [Suspect]
     Indication: HIV INFECTION
     Route: 048
     Dates: start: 20040706, end: 20040722
  8. VALGANCICLOVIR [Concomitant]
     Indication: CYTOMEGALOVIRUS CHORIORETINITIS
     Route: 048
     Dates: start: 20041222, end: 20050202
  9. VALGANCICLOVIR [Concomitant]
     Indication: PROPHYLAXIS
  10. CLARITHROMYCIN [Concomitant]
     Indication: MYCOBACTERIUM AVIUM COMPLEX INFECTION
     Route: 048
     Dates: start: 20041013, end: 20041202
  11. AZITHROMYCIN [Concomitant]
     Indication: ANTIBIOTIC PROPHYLAXIS
     Route: 048
     Dates: start: 20041013
  12. AZITHROMYCIN [Concomitant]
     Route: 048
     Dates: start: 20041203
  13. AZITHROMYCIN [Concomitant]
     Dates: start: 20041013
  14. URSODEOXYCHOLIC ACID [Concomitant]
     Indication: HEPATITIS C
     Route: 048
     Dates: start: 20031127, end: 20031224
  15. BACTRIM [Concomitant]
     Indication: ANTIBIOTIC PROPHYLAXIS
     Route: 048
     Dates: start: 20040225
  16. AMPHOTERICIN B [Concomitant]
     Indication: INFECTION PROPHYLAXIS
     Route: 048
     Dates: start: 20040305, end: 20040319
  17. CYCLOSPORINE [Concomitant]
     Indication: PROPHYLAXIS AGAINST TRANSPLANT REJECTION
     Route: 048
     Dates: start: 20040507, end: 20041103
  18. CYCLOSPORINE [Concomitant]
     Route: 048
     Dates: start: 20041104
  19. ETHANBUTOL [Concomitant]
     Indication: MYCOBACTERIUM AVIUM COMPLEX INFECTION
     Route: 048
     Dates: start: 20041013, end: 20041202
  20. INTERFERON BETA [Concomitant]
     Indication: HEPATITIS C
     Route: 058
     Dates: start: 20041119, end: 20050331
  21. TACROLIMUS [Concomitant]
     Indication: PROPHYLAXIS AGAINST TRANSPLANT REJECTION
     Dates: start: 20040227, end: 20040506

REACTIONS (5)
  - DRUG INTERACTION [None]
  - HEPATIC FUNCTION ABNORMAL [None]
  - IMMUNOSUPPRESSANT DRUG LEVEL INCREASED [None]
  - JAUNDICE [None]
  - SUBDURAL HAEMATOMA [None]
